FAERS Safety Report 17224102 (Version 1)
Quarter: 2020Q1

REPORT INFORMATION
  Report Type: Spontaneous
  Country: FR (occurrence: FR)
  Receive Date: 20200102
  Receipt Date: 20200102
  Transmission Date: 20200409
  Serious: Yes (Other)
  Sender: FDA-Public Use
  Company Number: FR-TEVA-2019-FR-1160538

PATIENT
  Age: 58 Year
  Sex: Female

DRUGS (6)
  1. BOSENTAN MONOHYDRATE [Suspect]
     Active Substance: BOSENTAN
     Indication: SYSTEMIC SCLERODERMA
     Dosage: 125 MG
     Route: 048
     Dates: start: 20180919, end: 20181018
  2. KARDEGIC [Concomitant]
     Active Substance: ASPIRIN DL-LYSINE
  3. PARIET [Concomitant]
     Active Substance: RABEPRAZOLE SODIUM
  4. LOXEN L P 50 MG, G?LULE ? LIB?RATION PROLONG?E [Concomitant]
     Active Substance: NICARDIPINE HYDROCHLORIDE
  5. GAVISCON, SUSPENSION BUVABLE EN SACHET [Concomitant]
  6. ATORVASTATINE [Concomitant]
     Active Substance: ATORVASTATIN

REACTIONS (1)
  - Hepatocellular injury [Recovering/Resolving]

NARRATIVE: CASE EVENT DATE: 201910
